FAERS Safety Report 20102680 (Version 1)
Quarter: 2021Q4

REPORT INFORMATION
  Report Type: Spontaneous
  Country: US (occurrence: US)
  Receive Date: 20211123
  Receipt Date: 20211123
  Transmission Date: 20220303
  Serious: Yes (Hospitalization)
  Sender: FDA-Public Use
  Company Number: US-PARI RESPIRATORY EQUIPMENT, INC.-2021PAR00061

PATIENT
  Age: 25 Year
  Sex: Female

DRUGS (15)
  1. KITABIS PAK [Suspect]
     Active Substance: TOBRAMYCIN
     Indication: Cystic fibrosis
     Dosage: 300 MG/5 ML (1 VIAL) VIA NEBULIZER, 2X/DAY FOR 28 DAYS ON AND 28 DAYS OFF
     Dates: start: 20200303
  2. CITALOPRAM [Concomitant]
     Active Substance: CITALOPRAM HYDROBROMIDE
  3. GABAPENTIN [Concomitant]
     Active Substance: GABAPENTIN
  4. ALBUTEROL\IPRATROPIUM [Concomitant]
     Active Substance: ALBUTEROL\IPRATROPIUM
  5. IRON [Concomitant]
     Active Substance: IRON
  6. KEPPRA [Concomitant]
     Active Substance: LEVETIRACETAM
  7. MINOCYCLINE HYDROCHLORIDE [Concomitant]
     Active Substance: MINOCYCLINE HYDROCHLORIDE
  8. PREDNISONE [Concomitant]
     Active Substance: PREDNISONE
  9. PULMOZYME [Concomitant]
     Active Substance: DORNASE ALFA
  10. SYMBICORT AER [Concomitant]
  11. SYMDEKO [Concomitant]
     Active Substance: IVACAFTOR\TEZACAFTOR
  12. TOBI NEB [Concomitant]
  13. TRIKAFTA [Concomitant]
     Active Substance: ELEXACAFTOR\IVACAFTOR\TEZACAFTOR
  14. ZANTAC [Concomitant]
     Active Substance: RANITIDINE HYDROCHLORIDE
  15. ZENPEP [Concomitant]
     Active Substance: PANCRELIPASE AMYLASE\PANCRELIPASE LIPASE\PANCRELIPASE PROTEASE

REACTIONS (1)
  - Hospitalisation [Recovered/Resolved]

NARRATIVE: CASE EVENT DATE: 20211025
